FAERS Safety Report 8779641 (Version 1)
Quarter: 2012Q4

REPORT INFORMATION
  Report Type: 
  Country: US (occurrence: US)
  Receive Date: 20120912
  Receipt Date: 20120912
  Transmission Date: 20130627
  Serious: No
  Sender: FDA-Public Use
  Company Number: US-JNJFOC-20120900391

PATIENT
  Sex: Female
  Weight: 61.24 kg

DRUGS (2)
  1. PALIPERIDONE [Suspect]
     Indication: BIPOLAR DISORDER
     Route: 048
  2. ABILIFY [Suspect]
     Indication: BIPOLAR DISORDER
     Route: 065

REACTIONS (1)
  - Drug ineffective [Unknown]
